FAERS Safety Report 10313425 (Version 3)
Quarter: 2015Q1

REPORT INFORMATION
  Report Type: Spontaneous
  Country: US (occurrence: US)
  Receive Date: 20140718
  Receipt Date: 20150319
  Transmission Date: 20150720
  Serious: Yes (Hospitalization)
  Sender: FDA-Public Use
  Company Number: US-BAYER-2014-107839

PATIENT
  Age: 40 Year
  Sex: Female
  Weight: 93.42 kg

DRUGS (7)
  1. NAPROSYN [Concomitant]
     Active Substance: NAPROXEN
     Dosage: 500 MG, UNK
     Route: 048
     Dates: start: 20120327
  2. ADVIL [Concomitant]
     Active Substance: IBUPROFEN
     Dosage: UNK UNK, PRN
     Dates: start: 20120420
  3. MOBIC [Concomitant]
     Active Substance: MELOXICAM
     Indication: NECK PAIN
  4. FLEXERIL [Concomitant]
     Active Substance: CYCLOBENZAPRINE HYDROCHLORIDE
     Dosage: 10 MG, HS
     Route: 048
     Dates: start: 20120327
  5. MOBIC [Concomitant]
     Active Substance: MELOXICAM
     Indication: BACK PAIN
     Dosage: 15 MG, HS
     Route: 048
     Dates: start: 20120327
  6. PERCOCET [Concomitant]
     Active Substance: ACETAMINOPHEN\OXYCODONE HYDROCHLORIDE
     Dosage: 5 MG/325 MG
     Route: 048
     Dates: start: 20120327
  7. MIRENA [Suspect]
     Active Substance: LEVONORGESTREL
     Indication: CONTRACEPTION
     Dosage: 20 MCG/24HR, CONT
     Route: 015
     Dates: start: 20091008, end: 20120508

REACTIONS (12)
  - Pain [Not Recovered/Not Resolved]
  - Fatigue [None]
  - Dizziness [None]
  - Medical device pain [Not Recovered/Not Resolved]
  - Injury [Not Recovered/Not Resolved]
  - Genital haemorrhage [None]
  - Back pain [None]
  - Abdominal pain lower [Not Recovered/Not Resolved]
  - Embedded device [Not Recovered/Not Resolved]
  - Discomfort [None]
  - Headache [None]
  - Procedural pain [Not Recovered/Not Resolved]

NARRATIVE: CASE EVENT DATE: 201205
